FAERS Safety Report 4675346-2 (Version None)
Quarter: 2005Q2

REPORT INFORMATION
  Report Type: 
  Country: None (occurrence: None)
  Receive Date: 20050527
  Receipt Date: 20050517
  Transmission Date: 20051028
  Serious: Yes (Other)
  Sender: FDA-Public Use
  Company Number: US-KINGPHARMUSA00001-K200500655

PATIENT
  Sex: Female

DRUGS (1)
  1. SEPTRA [Suspect]
     Dosage: 7.5 MG, BID
     Route: 048

REACTIONS (1)
  - VASCULITIS [None]
